FAERS Safety Report 10234005 (Version 1)
Quarter: 2014Q2

REPORT INFORMATION
  Report Type: Spontaneous
  Country: US (occurrence: US)
  Receive Date: 20140612
  Receipt Date: 20140612
  Transmission Date: 20141212
  Serious: No
  Sender: FDA-Public Use
  Company Number: US-BAYER-2014-076939

PATIENT
  Sex: Male

DRUGS (3)
  1. XOFIGO [Suspect]
  2. XOFIGO [Suspect]
  3. MORPHINE [Concomitant]
     Dosage: UNK

REACTIONS (5)
  - Blood pressure abnormal [None]
  - Nausea [None]
  - Vomiting [None]
  - Fatigue [None]
  - Back pain [None]
